FAERS Safety Report 25626175 (Version 2)
Quarter: 2025Q3

REPORT INFORMATION
  Report Type: Report from Study
  Country: IN (occurrence: IN)
  Receive Date: 20250731
  Receipt Date: 20250915
  Transmission Date: 20251020
  Serious: Yes (Other)
  Sender: ROCHE
  Company Number: IN-002147023-NVSC2025IN117178

PATIENT
  Age: 51 Year
  Sex: Female

DRUGS (1)
  1. RANIBIZUMAB [Suspect]
     Active Substance: RANIBIZUMAB
     Indication: Age-related macular degeneration
     Route: 050
     Dates: start: 20241005

REACTIONS (2)
  - Choroidal neovascularisation [Unknown]
  - Pseudophakia [Unknown]

NARRATIVE: CASE EVENT DATE: 20250708
